FAERS Safety Report 10062549 (Version 1)
Quarter: 2014Q2

REPORT INFORMATION
  Report Type: Spontaneous
  Country: ZA (occurrence: ZA)
  Receive Date: 20140407
  Receipt Date: 20140407
  Transmission Date: 20141212
  Serious: Yes (Death)
  Sender: FDA-Public Use
  Company Number: ZA-ASTRAZENECA-2014SE23748

PATIENT
  Sex: Female

DRUGS (1)
  1. SYMBICORD [Suspect]
     Indication: EMPHYSEMA
     Dosage: 160/4.5 MCG, UNKNOWN
     Route: 055

REACTIONS (1)
  - Condition aggravated [Fatal]
